FAERS Safety Report 11051725 (Version 1)
Quarter: 2015Q2

REPORT INFORMATION
  Report Type: Spontaneous
  Country: US (occurrence: None)
  Receive Date: 20150420
  Receipt Date: 20150420
  Transmission Date: 20150821
  Serious: Yes (Disabling)
  Sender: FDA-Public Use
  Company Number: None

PATIENT
  Age: 42 Year
  Sex: Male
  Weight: 77.11 kg

DRUGS (2)
  1. CIPROFLOXACIN. [Suspect]
     Active Substance: CIPROFLOXACIN
     Dosage: 1000 MG, PO, QDAY
     Route: 048
  2. CIPROFLOXACIN. [Concomitant]
     Active Substance: CIPROFLOXACIN

REACTIONS (12)
  - Apparent death [None]
  - Pain [None]
  - Impaired driving ability [None]
  - Memory impairment [None]
  - Disturbance in attention [None]
  - Fatigue [None]
  - Hyperaesthesia [None]
  - Myalgia [None]
  - Musculoskeletal pain [None]
  - Arthralgia [None]
  - Influenza like illness [None]
  - Tendon pain [None]

NARRATIVE: CASE EVENT DATE: 20031030
